FAERS Safety Report 26112046 (Version 1)
Quarter: 2025Q4

REPORT INFORMATION
  Report Type: Spontaneous
  Country: EU (occurrence: EU)
  Receive Date: 20251202
  Receipt Date: 20251202
  Transmission Date: 20260117
  Serious: Yes (Congenital Anomaly)
  Sender: CHEPLAPHARM
  Company Number: None

PATIENT
  Sex: Male
  Weight: 3.0999 kg

DRUGS (2)
  1. CLONAZEPAM [Suspect]
     Active Substance: CLONAZEPAM
     Route: 064
     Dates: start: 20241202, end: 20250827
  2. LAMICTAL [Suspect]
     Active Substance: LAMOTRIGINE
     Route: 064
     Dates: start: 20241202, end: 20250827

REACTIONS (9)
  - Neonatal hypoxia [Recovered/Resolved]
  - Bradycardia neonatal [Recovered/Resolved]
  - Syndactyly [Unknown]
  - Foetal exposure during pregnancy [Recovered/Resolved]
  - Cyanosis [Recovered/Resolved]
  - Somnolence [Unknown]
  - Hypopnoea [Unknown]
  - Duodenogastric reflux [Unknown]
  - Plagiocephaly [Unknown]

NARRATIVE: CASE EVENT DATE: 20250801
